FAERS Safety Report 23975850 (Version 1)
Quarter: 2024Q2

REPORT INFORMATION
  Report Type: Spontaneous
  Country: DE (occurrence: DE)
  Receive Date: 20240614
  Receipt Date: 20240614
  Transmission Date: 20240716
  Serious: Yes (Other)
  Sender: FDA-Public Use
  Company Number: DE-TAKEDA-2024TUS058134

PATIENT
  Sex: Female

DRUGS (5)
  1. MESALAMINE [Suspect]
     Active Substance: MESALAMINE
     Indication: Colitis ulcerative
     Dosage: UNK
     Route: 065
  2. CORTISONE [Concomitant]
     Active Substance: CORTISONE
  3. Cortiment [Concomitant]
  4. BUDESONIDE [Concomitant]
     Active Substance: BUDESONIDE
  5. FILGOTINIB [Concomitant]
     Active Substance: FILGOTINIB

REACTIONS (4)
  - Large intestinal haemorrhage [Recovering/Resolving]
  - Gastrointestinal pain [Unknown]
  - Faecal calprotectin abnormal [Unknown]
  - Drug ineffective [Unknown]
